FAERS Safety Report 17700031 (Version 1)
Quarter: 2020Q2

REPORT INFORMATION
  Report Type: Spontaneous
  Country: US (occurrence: US)
  Receive Date: 20200423
  Receipt Date: 20200423
  Transmission Date: 20200714
  Serious: No
  Sender: FDA-Public Use
  Company Number: US-ASTELLAS-2019US034708

PATIENT
  Age: 57 Year
  Sex: Female

DRUGS (4)
  1. LEXISCAN [Suspect]
     Active Substance: REGADENOSON
     Indication: SCAN MYOCARDIAL PERFUSION
     Dosage: 0.4MG /5 ML SINGLE BOLUS DOSE OVER 10 SECONDS
     Route: 042
     Dates: start: 20190626, end: 20190626
  2. LEXISCAN [Suspect]
     Active Substance: REGADENOSON
     Indication: SCAN MYOCARDIAL PERFUSION
     Dosage: 0.4MG /5 ML SINGLE BOLUS DOSE OVER 10 SECONDS
     Route: 042
     Dates: start: 20190626, end: 20190626
  3. LEXISCAN [Suspect]
     Active Substance: REGADENOSON
     Indication: SCAN MYOCARDIAL PERFUSION
     Dosage: 0.4MG /5 ML SINGLE BOLUS DOSE OVER 10 SECONDS
     Route: 042
     Dates: start: 20190626, end: 20190626
  4. LEXISCAN [Suspect]
     Active Substance: REGADENOSON
     Indication: SCAN MYOCARDIAL PERFUSION
     Dosage: 0.4MG /5 ML SINGLE BOLUS DOSE OVER 10 SECONDS
     Route: 042
     Dates: start: 20190626, end: 20190626

REACTIONS (2)
  - Body temperature increased [Recovered/Resolved]
  - Pain in extremity [Recovered/Resolved]

NARRATIVE: CASE EVENT DATE: 20190626
